FAERS Safety Report 10012375 (Version 1)
Quarter: 2014Q1

REPORT INFORMATION
  Report Type: Spontaneous
  Country: IT (occurrence: IT)
  Receive Date: 20140314
  Receipt Date: 20140314
  Transmission Date: 20141002
  Serious: Yes (Other)
  Sender: FDA-Public Use
  Company Number: IT-ASTRAZENECA-2014SE16329

PATIENT
  Age: 62 Year
  Sex: Male

DRUGS (3)
  1. ESOMEPRAZOLE [Suspect]
     Indication: HELICOBACTER GASTRITIS
     Route: 048
     Dates: end: 20110714
  2. AMOXICILLIN [Concomitant]
     Indication: HELICOBACTER GASTRITIS
  3. CLARITHROMYCIN [Concomitant]
     Indication: HELICOBACTER GASTRITIS

REACTIONS (2)
  - Diabetes mellitus [Recovered/Resolved]
  - Drug-induced liver injury [Recovered/Resolved]
